FAERS Safety Report 7539444-8 (Version None)
Quarter: 2011Q2

REPORT INFORMATION
  Report Type: 
  Country: None (occurrence: None)
  Receive Date: 20110609
  Receipt Date: 20110609
  Transmission Date: 20111010
  Serious: Yes (Disabling)
  Sender: FDA-Public Use
  Company Number: None

PATIENT
  Sex: Male

DRUGS (1)
  1. PREDNISOLONE ACETATE [Suspect]
     Indication: CORNEAL TRANSPLANT
     Dosage: 1 DROP TID OPH.
     Route: 047

REACTIONS (1)
  - CORNEAL GRAFT REJECTION [None]
